FAERS Safety Report 4642883-6 (Version None)
Quarter: 2005Q2

REPORT INFORMATION
  Report Type: 
  Country: None (occurrence: None)
  Receive Date: 20050421
  Receipt Date: 20050411
  Transmission Date: 20051028
  Serious: Yes (Hospitalization)
  Sender: FDA-Public Use
  Company Number: RS005113-J

PATIENT
  Age: 75 Year
  Sex: Female

DRUGS (3)
  1. RABEPRAZOLE SODIUM [Suspect]
     Indication: REFLUX OESOPHAGITIS
     Dosage: 10 MG, 1 IN 1 D, ORAL
     Route: 048
     Dates: start: 20050406
  2. TAGAMET [Suspect]
     Indication: REFLUX OESOPHAGITIS
     Dates: start: 20050326
  3. SUCRALFATE [Suspect]
     Indication: REFLUX OESOPHAGITIS
     Dates: start: 20050326

REACTIONS (2)
  - BLOOD GLUCOSE DECREASED [None]
  - DEPRESSED LEVEL OF CONSCIOUSNESS [None]
